FAERS Safety Report 9598392 (Version 1)
Quarter: 2013Q4

REPORT INFORMATION
  Report Type: Spontaneous
  Country: US (occurrence: US)
  Receive Date: 20131004
  Receipt Date: 20131004
  Transmission Date: 20140711
  Serious: No
  Sender: FDA-Public Use
  Company Number: US-AMGEN-USASP2013023542

PATIENT
  Age: 58 Year
  Sex: Female
  Weight: 71.66 kg

DRUGS (7)
  1. ENBREL [Suspect]
     Indication: PRODUCT USED FOR UNKNOWN INDICATION
     Dosage: 50 MG, QWK
     Dates: start: 2006
  2. METHOTREXATE [Concomitant]
     Dosage: 2.5 MG, UNK
  3. SELENIUM [Concomitant]
     Dosage: 50 MUG, UNK
  4. CO Q 10                            /00517201/ [Concomitant]
     Dosage: UNK
  5. B COMPLEX                          /00212701/ [Concomitant]
     Dosage: UNK
  6. FOLIC ACID [Concomitant]
     Dosage: UNK
  7. LYSINE [Concomitant]
     Dosage: 500 MG, UNK

REACTIONS (1)
  - Stomatitis [Unknown]
